FAERS Safety Report 8616389-3 (Version None)
Quarter: 2012Q3

REPORT INFORMATION
  Report Type: 
  Country: None (occurrence: None)
  Receive Date: 20120815
  Receipt Date: 20120815
  Transmission Date: 20120928
  Serious: Yes (Other)
  Sender: FDA-Public Use
  Company Number: None

PATIENT
  Age: 60 Year
  Sex: Female
  Weight: 74.8435 kg

DRUGS (9)
  1. PREMPRO [Concomitant]
  2. DOXYCYCLINE [Suspect]
     Indication: URINARY TRACT INFECTION
     Dosage: 1 TABLET MORNING AND NIGHT PO
     Route: 048
     Dates: start: 20120811, end: 20120812
  3. LISINOPRIL [Concomitant]
  4. BACLOFEN [Concomitant]
  5. SEROQUEL [Concomitant]
  6. LEXAPRO [Concomitant]
  7. MELLARIL [Concomitant]
  8. VESICARE [Concomitant]
  9. LAMICTAL [Concomitant]

REACTIONS (4)
  - PAIN [None]
  - ARTHRALGIA [None]
  - BACK PAIN [None]
  - BONE PAIN [None]
